FAERS Safety Report 15580198 (Version 1)
Quarter: 2018Q4

REPORT INFORMATION
  Report Type: Spontaneous
  Country: US (occurrence: US)
  Receive Date: 20181101
  Receipt Date: 20181101
  Transmission Date: 20190205
  Serious: Yes (Hospitalization, Other)
  Sender: FDA-Public Use
  Company Number: None

PATIENT
  Age: 35 Year
  Sex: Female
  Weight: 66.22 kg

DRUGS (1)
  1. MIRENA [Suspect]
     Active Substance: LEVONORGESTREL

REACTIONS (12)
  - Nausea [None]
  - Migraine [None]
  - Dizziness [None]
  - Impaired driving ability [None]
  - Palpitations [None]
  - Dyspnoea [None]
  - Tachycardia [None]
  - Eye pain [None]
  - Suicidal ideation [None]
  - Anxiety [None]
  - Panic attack [None]
  - Loss of personal independence in daily activities [None]

NARRATIVE: CASE EVENT DATE: 20180504
